FAERS Safety Report 7488831-5 (Version None)
Quarter: 2011Q2

REPORT INFORMATION
  Report Type: 
  Country: None (occurrence: None)
  Receive Date: 20110518
  Receipt Date: 20110517
  Transmission Date: 20111010
  Serious: Yes (Death, Life-Threatening, Other)
  Sender: FDA-Public Use
  Company Number: DE-PFIZER INC-2010076332

PATIENT
  Age: 42 Year
  Sex: Male

DRUGS (2)
  1. ARTERENOL [Concomitant]
     Dosage: 0.2 - 5 MG/ML, UNK
     Route: 065
     Dates: start: 20100418, end: 20100420
  2. ARGATROBAN [Suspect]
     Indication: HEPARIN-INDUCED THROMBOCYTOPENIA
     Dosage: UNK
     Route: 042
     Dates: start: 20100418, end: 20100419

REACTIONS (4)
  - CARDIOGENIC SHOCK [None]
  - INTESTINAL ISCHAEMIA [None]
  - SEPSIS [None]
  - MULTI-ORGAN FAILURE [None]
